FAERS Safety Report 8541609-3 (Version None)
Quarter: 2012Q3

REPORT INFORMATION
  Report Type: 
  Country: None (occurrence: None)
  Receive Date: 20120726
  Receipt Date: 20120719
  Transmission Date: 20120928
  Serious: Yes (Other)
  Sender: FDA-Public Use
  Company Number: CA-ROCHE-1021878

PATIENT
  Sex: Female
  Weight: 76.272 kg

DRUGS (6)
  1. FOLIC ACID [Concomitant]
  2. ACTEMRA [Suspect]
     Indication: RHEUMATOID ARTHRITIS
     Route: 042
     Dates: start: 20110106, end: 20111114
  3. PREDNISONE [Concomitant]
  4. CELEBREX [Concomitant]
  5. METHYLDOPA [Concomitant]
     Dosage: DRUG NAME: MIPHYLDOPA
  6. AZATHIOPRINE [Concomitant]

REACTIONS (4)
  - RHEUMATOID ARTHRITIS [None]
  - MATERNAL EXPOSURE DURING PREGNANCY [None]
  - PULMONARY FIBROSIS [None]
  - ABORTION SPONTANEOUS [None]
